FAERS Safety Report 8290101-2 (Version None)
Quarter: 2012Q1

REPORT INFORMATION
  Report Type: 
  Country: None (occurrence: None)
  Receive Date: 20120316
  Receipt Date: 20090317
  Transmission Date: 20120608
  Serious: Yes (Other)
  Sender: FDA-Public Use
  Company Number: PHEH2008US10393

PATIENT
  Age: 50 Year
  Sex: Female
  Weight: 123.4 kg

DRUGS (9)
  1. LOTREL [Concomitant]
  2. HYDROCHLOROTHIAZIDE [Concomitant]
  3. TEKTURNA [Suspect]
     Indication: HYPERTENSION
     Dosage: 150 MG, QD, ORAL
     Route: 048
     Dates: start: 20081030, end: 20081114
  4. CALTRATE (CALCIUIM CARBONATE) [Concomitant]
  5. NEXIUM (ESOMEPRAZOLE MAGNESIUIM) [Concomitant]
  6. WELCHOL [Suspect]
     Dosage: UNK
     Dates: start: 20081030
  7. CELEBREX [Concomitant]
  8. NORVASC [Concomitant]
  9. XYZAL [Concomitant]

REACTIONS (4)
  - PRURITUS [None]
  - URTICARIA [None]
  - SKIN OEDEMA [None]
  - SWELLING FACE [None]
